FAERS Safety Report 5233641-2 (Version None)
Quarter: 2007Q1

REPORT INFORMATION
  Report Type: 
  Country: None (occurrence: None)
  Receive Date: 20070208
  Receipt Date: 20070206
  Transmission Date: 20070707
  Serious: Yes (Hospitalization)
  Sender: FDA-Public Use
  Company Number: FR-BAYER-200710092BFR

PATIENT
  Age: 76 Year
  Sex: Female

DRUGS (4)
  1. CIPROFLOXACIN [Suspect]
     Indication: UNEVALUABLE EVENT
     Dosage: TOTAL DAILY DOSE: 1 G  UNIT DOSE: 500 MG
     Route: 048
     Dates: start: 20061206, end: 20061214
  2. TAHOR [Concomitant]
     Indication: UNEVALUABLE EVENT
     Route: 065
  3. EQUANIL [Concomitant]
     Indication: UNEVALUABLE EVENT
     Route: 065
  4. ZOLPIDEM TARTRATE [Concomitant]
     Indication: UNEVALUABLE EVENT
     Route: 065

REACTIONS (4)
  - DERMATITIS EXFOLIATIVE [None]
  - EOSINOPHILIA [None]
  - PYREXIA [None]
  - RASH MACULO-PAPULAR [None]
